FAERS Safety Report 8534242-0 (Version None)
Quarter: 2012Q3

REPORT INFORMATION
  Report Type: 
  Country: None (occurrence: None)
  Receive Date: 20120724
  Receipt Date: 20120718
  Transmission Date: 20120928
  Serious: Yes (Hospitalization, Other)
  Sender: FDA-Public Use
  Company Number: BR-ABBOTT-12P-020-0958102-00

PATIENT
  Sex: Female
  Weight: 64 kg

DRUGS (9)
  1. ALENDRONATE SODIUM [Concomitant]
     Indication: BONE DISORDER
     Route: 048
     Dates: end: 20120401
  2. CHEMOTHERAPEUTICS [Suspect]
     Indication: GASTROINTESTINAL CARCINOMA
     Dosage: EVERY 20 DAYS
     Route: 042
  3. SYNTHROID [Suspect]
     Indication: HYPOTHYROIDISM
     Dosage: 1 IN 1 DAY, IN THE MORNING
     Route: 048
  4. CHEMOTHERAPEUTICS [Suspect]
     Route: 048
  5. SYNTHROID [Suspect]
     Dosage: 1 IN 1 DAY, IN THE MORNING
     Route: 048
  6. ASPIRIN [Concomitant]
     Indication: ANTICOAGULANT THERAPY
     Route: 048
     Dates: end: 20120401
  7. SYNTHROID [Suspect]
     Dosage: 1 IN 1 DAY, IN THE MORNING
     Route: 048
  8. CALTRATE D [Concomitant]
     Indication: BONE DISORDER
     Dosage: 1 TABLET DAILY
     Route: 048
     Dates: end: 20120401
  9. CALTRATE D [Concomitant]
     Indication: PROPHYLAXIS

REACTIONS (16)
  - FEELING ABNORMAL [None]
  - VOMITING [None]
  - MEMORY IMPAIRMENT [None]
  - ENDOMETRIAL NEOPLASM [None]
  - ABDOMINAL PAIN UPPER [None]
  - DIARRHOEA [None]
  - WEIGHT DECREASED [None]
  - GASTROINTESTINAL CARCINOMA [None]
  - ABDOMINAL PAIN [None]
  - VISUAL IMPAIRMENT [None]
  - BLOOD CHOLESTEROL ABNORMAL [None]
  - PYREXIA [None]
  - RASH MACULAR [None]
  - BLOOD TRIGLYCERIDES ABNORMAL [None]
  - ANAEMIA [None]
  - PAIN [None]
